FAERS Safety Report 20536670 (Version 1)
Quarter: 2022Q1

REPORT INFORMATION
  Report Type: Report from Study
  Country: JP (occurrence: JP)
  Receive Date: 20220302
  Receipt Date: 20220302
  Transmission Date: 20220423
  Serious: Yes (Hospitalization)
  Sender: FDA-Public Use
  Company Number: JP-JNJFOC-20210842877

PATIENT
  Age: 70 Year
  Sex: Male
  Weight: 76.3 kg

DRUGS (12)
  1. AMIVANTAMAB [Suspect]
     Active Substance: AMIVANTAMAB
     Indication: Non-small cell lung cancer
     Dosage: EVERY WEEK/ EVERY 2 WEEKS
     Route: 042
     Dates: start: 20200415
  2. LASIX [Concomitant]
     Active Substance: FUROSEMIDE
     Indication: Oedema peripheral
     Route: 048
     Dates: start: 20200613
  3. LOXOPROFEN SODIUM [Concomitant]
     Active Substance: LOXOPROFEN SODIUM
     Indication: Tumour pain
     Route: 048
     Dates: start: 20210402
  4. REBAMIDE [Concomitant]
     Indication: Gastritis prophylaxis
     Route: 048
     Dates: start: 20210402
  5. LOPERAMIDE HYDROCHLORIDE [Concomitant]
     Active Substance: LOPERAMIDE HYDROCHLORIDE
     Indication: Diarrhoea
     Route: 048
     Dates: start: 20210430
  6. ALDACTONE [Concomitant]
     Active Substance: SPIRONOLACTONE
     Indication: Oedema peripheral
     Route: 048
     Dates: start: 20210528
  7. EPISIL [Concomitant]
     Indication: Stomatitis
     Dosage: 1 APPLICATION
     Route: 061
     Dates: start: 20210706
  8. EPISIL [Concomitant]
     Indication: Cheilitis
  9. AMOXICILLIN [Concomitant]
     Active Substance: AMOXICILLIN
     Indication: Cellulitis
     Route: 048
     Dates: start: 20210813
  10. AUGMENTIN [Concomitant]
     Active Substance: AMOXICILLIN\CLAVULANATE POTASSIUM
     Indication: Cellulitis
     Dosage: 1 TABLET
     Route: 048
     Dates: start: 20210813
  11. LANSOPRAZOLE [Concomitant]
     Active Substance: LANSOPRAZOLE
     Indication: Prophylaxis
     Route: 048
     Dates: start: 20210902
  12. AMOXICILLIN [Concomitant]
     Active Substance: AMOXICILLIN
     Indication: Cellulitis
     Route: 048
     Dates: start: 20210903

REACTIONS (1)
  - Peripheral embolism [Recovering/Resolving]

NARRATIVE: CASE EVENT DATE: 20210819
